FAERS Safety Report 9759757 (Version 1)
Quarter: 2013Q4

REPORT INFORMATION
  Report Type: Spontaneous
  Country: US (occurrence: US)
  Receive Date: 20131216
  Receipt Date: 20131216
  Transmission Date: 20140711
  Serious: Yes (Hospitalization)
  Sender: FDA-Public Use
  Company Number: US-GILEAD-2010-0029115

PATIENT
  Age: 65 Year
  Sex: Male
  Weight: 81.8 kg

DRUGS (12)
  1. LETAIRIS [Suspect]
     Indication: PULMONARY ARTERIAL HYPERTENSION
     Route: 048
     Dates: start: 20090422
  2. COUMADIN [Concomitant]
  3. DEMADEX [Concomitant]
  4. METOLAZONE [Concomitant]
  5. SPIRONOLACTONE [Concomitant]
  6. CARDIZEM [Concomitant]
  7. ZOCOR [Concomitant]
  8. DILANTIN [Concomitant]
  9. ALLOPURINOL [Concomitant]
  10. TYLENOL [Concomitant]
  11. K-DUR [Concomitant]
  12. LEVOXYL [Concomitant]

REACTIONS (1)
  - Fluid overload [Recovered/Resolved]
